FAERS Safety Report 23904837 (Version 1)
Quarter: 2024Q2

REPORT INFORMATION
  Report Type: Spontaneous
  Country: AU (occurrence: AU)
  Receive Date: 20240527
  Receipt Date: 20240527
  Transmission Date: 20240716
  Serious: Yes (Other)
  Sender: FDA-Public Use
  Company Number: AU-TEVA-VS-3201162

PATIENT
  Age: 71 Year
  Sex: Female

DRUGS (2)
  1. AZACITIDINE [Suspect]
     Active Substance: AZACITIDINE
     Route: 065
  2. VENETOCLAX [Suspect]
     Active Substance: VENETOCLAX
     Route: 065

REACTIONS (8)
  - Acute kidney injury [Unknown]
  - Liver injury [Unknown]
  - Necrotising myositis [Unknown]
  - Pyrexia [Unknown]
  - Renal tubular necrosis [Unknown]
  - Viral infection [Unknown]
  - Muscle atrophy [Unknown]
  - Myositis [Unknown]
